FAERS Safety Report 14010513 (Version 1)
Quarter: 2017Q3

REPORT INFORMATION
  Report Type: Spontaneous
  Country: US (occurrence: US)
  Receive Date: 20170926
  Receipt Date: 20170926
  Transmission Date: 20171128
  Serious: Yes (Other)
  Sender: FDA-Public Use
  Company Number: US-ALEMBIC PHARMACUETICALS LIMITED-2017SCAL000776

PATIENT

DRUGS (1)
  1. CELECOXIB. [Suspect]
     Active Substance: CELECOXIB
     Indication: ADENOMA BENIGN
     Dosage: UNK
     Route: 065

REACTIONS (3)
  - Drug effective for unapproved indication [Unknown]
  - Drug ineffective for unapproved indication [Unknown]
  - Cardiotoxicity [Unknown]
